FAERS Safety Report 23360230 (Version 2)
Quarter: 2024Q1

REPORT INFORMATION
  Report Type: Spontaneous
  Country: US (occurrence: None)
  Receive Date: 20240103
  Receipt Date: 20240126
  Transmission Date: 20240410
  Serious: No
  Sender: FDA-Public Use
  Company Number: 2023A286968

PATIENT

DRUGS (1)
  1. FASENRA [Suspect]
     Active Substance: BENRALIZUMAB
     Route: 058

REACTIONS (19)
  - Asthma [Unknown]
  - Bronchitis chronic [Unknown]
  - Illness [Unknown]
  - Respiratory syncytial virus infection [Unknown]
  - Speech disorder [Unknown]
  - Dysphonia [Unknown]
  - Pruritus [Unknown]
  - Pain [Unknown]
  - Acne [Unknown]
  - Mouth swelling [Unknown]
  - Feeling abnormal [Unknown]
  - Sputum increased [Unknown]
  - Swelling [Unknown]
  - Swollen tongue [Unknown]
  - Skin haemorrhage [Unknown]
  - Scab [Unknown]
  - Hypersensitivity [Unknown]
  - Rash [Unknown]
  - Product dose omission issue [Unknown]
